FAERS Safety Report 25700477 (Version 2)
Quarter: 2025Q3

REPORT INFORMATION
  Report Type: Spontaneous
  Country: US (occurrence: US)
  Receive Date: 20250819
  Receipt Date: 20250926
  Transmission Date: 20251021
  Serious: No
  Sender: PFIZER
  Company Number: US-PFIZER INC-PV202500099136

PATIENT
  Age: 17 Year
  Sex: Female
  Weight: 54.785 kg

DRUGS (1)
  1. BICILLIN L-A [Suspect]
     Active Substance: PENICILLIN G BENZATHINE
     Indication: Syphilis
     Dosage: FOR 3 WEEKS, 4 DOSES TOTAL
     Route: 030
     Dates: start: 20241106, end: 20241120

REACTIONS (3)
  - Recalled product administered [Unknown]
  - Off label use [Unknown]
  - Product use issue [Unknown]
